FAERS Safety Report 7122072-6 (Version None)
Quarter: 2010Q4

REPORT INFORMATION
  Report Type: 
  Country: None (occurrence: None)
  Receive Date: 20101124
  Receipt Date: 20101122
  Transmission Date: 20110411
  Serious: Yes (Other)
  Sender: FDA-Public Use
  Company Number: Z0006544A

PATIENT
  Sex: Female
  Weight: 66.5 kg

DRUGS (2)
  1. LAPATINIB [Suspect]
     Dosage: 1250MG PER DAY
     Route: 048
     Dates: start: 20100423
  2. CAPECITABINE [Suspect]
     Dosage: 2000MGM2 CYCLIC
     Route: 048
     Dates: start: 20100423

REACTIONS (1)
  - NEUTROPENIA [None]
